FAERS Safety Report 20481769 (Version 2)
Quarter: 2022Q1

REPORT INFORMATION
  Report Type: Spontaneous
  Country: AU (occurrence: AU)
  Receive Date: 20220216
  Receipt Date: 20220228
  Transmission Date: 20220423
  Serious: Yes (Other)
  Sender: FDA-Public Use
  Company Number: AU-RECORDATI-2022000458

PATIENT
  Sex: Male

DRUGS (1)
  1. SILODOSIN [Suspect]
     Active Substance: SILODOSIN
     Indication: Urine flow decreased
     Dosage: UNK
     Dates: start: 202007

REACTIONS (6)
  - Ejaculation failure [Not Recovered/Not Resolved]
  - Serum ferritin increased [Unknown]
  - Penis disorder [Not Recovered/Not Resolved]
  - Erectile dysfunction [Not Recovered/Not Resolved]
  - Eye disorder [Not Recovered/Not Resolved]
  - Retrograde ejaculation [Unknown]

NARRATIVE: CASE EVENT DATE: 20200101
